FAERS Safety Report 5551500-2 (Version None)
Quarter: 2007Q4

REPORT INFORMATION
  Report Type: 
  Country: None (occurrence: None)
  Receive Date: 20071212
  Receipt Date: 20071206
  Transmission Date: 20080405
  Serious: Yes (Hospitalization, Other)
  Sender: FDA-Public Use
  Company Number: AU-AVENTIS-200719571GDDC

PATIENT
  Age: 70 Year
  Sex: Female

DRUGS (11)
  1. ARAVA [Suspect]
     Indication: RHEUMATOID ARTHRITIS
     Route: 048
     Dates: start: 20070415, end: 20070912
  2. METHOTREXATE [Concomitant]
     Indication: RHEUMATOID ARTHRITIS
     Dates: start: 20041001
  3. DIABEX [Concomitant]
  4. AMARYL [Concomitant]
  5. LIPITOR [Concomitant]
  6. MICARDIS [Concomitant]
     Indication: HYPERTENSION
  7. MICARDIS [Concomitant]
  8. COVERSYL                           /00790701/ [Concomitant]
     Indication: HYPERTENSION
  9. LASIX [Concomitant]
     Indication: HYPERTENSION
  10. PLAQUENIL                          /00072601/ [Concomitant]
     Indication: RHEUMATOID ARTHRITIS
  11. PREDNISOLONE [Concomitant]
     Indication: RHEUMATOID ARTHRITIS
     Dates: start: 20070101

REACTIONS (7)
  - DEHYDRATION [None]
  - DIABETES MELLITUS INADEQUATE CONTROL [None]
  - DIARRHOEA [None]
  - NAUSEA [None]
  - PNEUMONIA [None]
  - UPPER RESPIRATORY TRACT INFECTION [None]
  - VOMITING [None]
